FAERS Safety Report 7533039-8 (Version None)
Quarter: 2011Q2

REPORT INFORMATION
  Report Type: 
  Country: None (occurrence: None)
  Receive Date: 20110608
  Receipt Date: 20110602
  Transmission Date: 20111010
  Serious: Yes (Death)
  Sender: FDA-Public Use
  Company Number: US-CELGENEUS-163-20785-11050950

PATIENT
  Sex: Male

DRUGS (2)
  1. THALOMID [Suspect]
     Dosage: 50 MILLIGRAM
     Route: 048
     Dates: start: 20110421, end: 20110429
  2. THALOMID [Suspect]
     Indication: MULTIPLE MYELOMA
     Dosage: 200 MILLIGRAM
     Route: 048
     Dates: start: 20090801

REACTIONS (2)
  - COLON CANCER METASTATIC [None]
  - GASTROINTESTINAL HAEMORRHAGE [None]
